FAERS Safety Report 12735479 (Version 4)
Quarter: 2016Q4

REPORT INFORMATION
  Report Type: Spontaneous
  Country: BR (occurrence: BR)
  Receive Date: 20160912
  Receipt Date: 20161010
  Transmission Date: 20170207
  Serious: Yes (Death, Hospitalization, Other)
  Sender: FDA-Public Use
  Company Number: BR-PFIZER INC-2016418791

PATIENT
  Age: 71 Year
  Sex: Male

DRUGS (7)
  1. FLAGYL [Concomitant]
     Active Substance: METRONIDAZOLE\METRONIDAZOLE HYDROCHLORIDE
     Indication: ANTIBIOTIC PROPHYLAXIS
     Dosage: 500 MG, 3X/DAY (EVERY 8 HOURS)
     Dates: start: 20160824
  2. TRAMAL [Concomitant]
     Active Substance: TRAMADOL
     Indication: ANALGESIC THERAPY
     Dosage: 100 MG, 3X/DAY (EVERY 8 HOURS)
     Dates: start: 20160824
  3. BUSCOPAN COMPOSTO [Concomitant]
     Indication: ANALGESIC THERAPY
     Dosage: 1 AMPOULE, 3X/DAY (EVERY 8 HOURS)
     Dates: start: 20160824
  4. SUPERAN /00690802/ [Concomitant]
     Indication: ANTIEMETIC SUPPORTIVE CARE
     Dosage: 50 MG, 3X/DAY (EVERY 8 HOURS)
     Dates: start: 20160824
  5. RINGER LACTATO BP [Concomitant]
     Indication: DEHYDRATION
  6. ADRIBLASTINA [Suspect]
     Active Substance: DOXORUBICIN HYDROCHLORIDE
     Indication: HEPATOCELLULAR CARCINOMA
     Dosage: UNK
     Route: 013
     Dates: start: 20160824, end: 20160824
  7. CIPROFLOXACIN. [Concomitant]
     Active Substance: CIPROFLOXACIN
     Indication: ANTIBIOTIC PROPHYLAXIS
     Dosage: 400 MG, 2X/DAY (EVERY 12 HOURS)
     Dates: start: 20160824

REACTIONS (5)
  - Systemic inflammatory response syndrome [Unknown]
  - Cardio-respiratory arrest [Fatal]
  - Acute respiratory distress syndrome [Unknown]
  - Multiple organ dysfunction syndrome [Unknown]
  - Shock [Unknown]

NARRATIVE: CASE EVENT DATE: 201608
